FAERS Safety Report 5712077-1 (Version None)
Quarter: 2008Q2

REPORT INFORMATION
  Report Type: 
  Country: None (occurrence: None)
  Receive Date: 20080417
  Receipt Date: 20080409
  Transmission Date: 20081010
  Serious: Yes (Hospitalization)
  Sender: FDA-Public Use
  Company Number: 2008-02354

PATIENT
  Age: 79 Year
  Sex: Female

DRUGS (3)
  1. TOBRAMYCIN SULFATE [Suspect]
     Dosage: TOPICAL
     Route: 061
     Dates: start: 20070101
  2. PHENYLEPHRINE HYDROCHLORIDE [Concomitant]
  3. PREDNISOLONE ACETATE [Concomitant]

REACTIONS (1)
  - BRONCHOSPASM [None]
